FAERS Safety Report 12858787 (Version 1)
Quarter: 2016Q4

REPORT INFORMATION
  Report Type: Spontaneous
  Country: RU (occurrence: RU)
  Receive Date: 20161018
  Receipt Date: 20161018
  Transmission Date: 20170207
  Serious: Yes (Other)
  Sender: FDA-Public Use
  Company Number: RU-BAYER-2016-199666

PATIENT
  Age: 27 Year
  Sex: Female

DRUGS (1)
  1. YARINA [Suspect]
     Active Substance: DROSPIRENONE\ETHINYL ESTRADIOL
     Dosage: 1 DF, QD
     Route: 048
     Dates: start: 2011

REACTIONS (2)
  - Maxillary antrum operation [None]
  - Drug dose omission [None]

NARRATIVE: CASE EVENT DATE: 201610
